FAERS Safety Report 23587641 (Version 1)
Quarter: 2024Q1

REPORT INFORMATION
  Report Type: Report from Study
  Country: US (occurrence: US)
  Receive Date: 20240301
  Receipt Date: 20240301
  Transmission Date: 20240410
  Serious: Yes (Other)
  Sender: FDA-Public Use
  Company Number: US-ABBVIE-4756119

PATIENT
  Sex: Female
  Weight: 78.925 kg

DRUGS (2)
  1. HUMIRA [Suspect]
     Active Substance: ADALIMUMAB
     Indication: Ankylosing spondylitis
     Dosage: START DATE:  APR OR MAY OF 2020
     Route: 058
     Dates: start: 2020, end: 202110
  2. CYCLOBENZAPRINE [Concomitant]
     Active Substance: CYCLOBENZAPRINE
     Indication: Product used for unknown indication
     Route: 048
     Dates: start: 20221111

REACTIONS (4)
  - Haemorrhage in pregnancy [Recovered/Resolved]
  - Maternal exposure during pregnancy [Unknown]
  - Live birth [Unknown]
  - Vaginal haemorrhage [Recovered/Resolved]
